FAERS Safety Report 25433869 (Version 1)
Quarter: 2025Q2

REPORT INFORMATION
  Report Type: Spontaneous
  Country: AU (occurrence: AU)
  Receive Date: 20250613
  Receipt Date: 20250613
  Transmission Date: 20250716
  Serious: Yes (Other)
  Sender: MYLAN
  Company Number: AU-MYLANLABS-2025M1049146

PATIENT
  Sex: Male

DRUGS (36)
  1. CLOZARIL [Suspect]
     Active Substance: CLOZAPINE
     Indication: Product used for unknown indication
     Route: 065
  2. CLOZARIL [Suspect]
     Active Substance: CLOZAPINE
  3. CLOZARIL [Suspect]
     Active Substance: CLOZAPINE
  4. CLOZARIL [Suspect]
     Active Substance: CLOZAPINE
     Route: 065
  5. CLOZARIL [Suspect]
     Active Substance: CLOZAPINE
     Route: 065
  6. CLOZARIL [Suspect]
     Active Substance: CLOZAPINE
  7. CLOZARIL [Suspect]
     Active Substance: CLOZAPINE
  8. CLOZARIL [Suspect]
     Active Substance: CLOZAPINE
     Route: 065
  9. CLOZARIL [Suspect]
     Active Substance: CLOZAPINE
  10. CLOZARIL [Suspect]
     Active Substance: CLOZAPINE
  11. CLOZARIL [Suspect]
     Active Substance: CLOZAPINE
     Route: 065
  12. CLOZARIL [Suspect]
     Active Substance: CLOZAPINE
     Route: 065
  13. CLOZARIL [Suspect]
     Active Substance: CLOZAPINE
  14. CLOZARIL [Suspect]
     Active Substance: CLOZAPINE
  15. CLOZARIL [Suspect]
     Active Substance: CLOZAPINE
     Route: 065
  16. CLOZARIL [Suspect]
     Active Substance: CLOZAPINE
     Route: 065
  17. CLOZARIL [Suspect]
     Active Substance: CLOZAPINE
  18. CLOZARIL [Suspect]
     Active Substance: CLOZAPINE
  19. CLOZARIL [Suspect]
     Active Substance: CLOZAPINE
     Route: 065
  20. CLOZARIL [Suspect]
     Active Substance: CLOZAPINE
     Route: 065
  21. CLOZARIL [Suspect]
     Active Substance: CLOZAPINE
     Route: 065
  22. CLOZARIL [Suspect]
     Active Substance: CLOZAPINE
  23. CLOZARIL [Suspect]
     Active Substance: CLOZAPINE
  24. CLOZARIL [Suspect]
     Active Substance: CLOZAPINE
     Route: 065
  25. CLOZARIL [Suspect]
     Active Substance: CLOZAPINE
     Route: 065
  26. CLOZARIL [Suspect]
     Active Substance: CLOZAPINE
  27. CLOZARIL [Suspect]
     Active Substance: CLOZAPINE
  28. CLOZARIL [Suspect]
     Active Substance: CLOZAPINE
     Route: 065
  29. CLOZARIL [Suspect]
     Active Substance: CLOZAPINE
  30. CLOZARIL [Suspect]
     Active Substance: CLOZAPINE
  31. CLOZARIL [Suspect]
     Active Substance: CLOZAPINE
     Route: 065
  32. CLOZARIL [Suspect]
     Active Substance: CLOZAPINE
     Route: 065
  33. CLOZARIL [Suspect]
     Active Substance: CLOZAPINE
  34. CLOZARIL [Suspect]
     Active Substance: CLOZAPINE
     Route: 065
  35. CLOZARIL [Suspect]
     Active Substance: CLOZAPINE
  36. CLOZARIL [Suspect]
     Active Substance: CLOZAPINE
     Route: 065

REACTIONS (4)
  - Mental impairment [Recovering/Resolving]
  - Electrocardiogram QT prolonged [Recovering/Resolving]
  - Delusion [Unknown]
  - Therapeutic response decreased [Unknown]

NARRATIVE: CASE EVENT DATE: 20240101
